FAERS Safety Report 6890880-2 (Version None)
Quarter: 2010Q3

REPORT INFORMATION
  Report Type: 
  Country: None (occurrence: None)
  Receive Date: 20100731
  Receipt Date: 20090407
  Transmission Date: 20110219
  Serious: No
  Sender: FDA-Public Use
  Company Number: US-PFIZER INC-2009164125

PATIENT
  Sex: Male
  Weight: 81.633 kg

DRUGS (4)
  1. LIPITOR [Suspect]
     Indication: BLOOD CHOLESTEROL INCREASED
     Dosage: 10 MG, 1X/DAY
     Dates: start: 20090120, end: 20090101
  2. WARFARIN SODIUM [Concomitant]
     Dosage: UNK
  3. DIGOXIN [Concomitant]
     Dosage: UNK
  4. CARDIZEM [Concomitant]
     Dosage: UNK

REACTIONS (3)
  - DYSPEPSIA [None]
  - INFLUENZA LIKE ILLNESS [None]
  - WRONG TECHNIQUE IN DRUG USAGE PROCESS [None]
